FAERS Safety Report 8519067-4 (Version None)
Quarter: 2012Q3

REPORT INFORMATION
  Report Type: 
  Country: None (occurrence: None)
  Receive Date: 20120718
  Receipt Date: 20120713
  Transmission Date: 20120928
  Serious: Yes (Hospitalization, Other)
  Sender: FDA-Public Use
  Company Number: US-PFIZER INC-2012169707

PATIENT
  Sex: Male
  Weight: 93.878 kg

DRUGS (1)
  1. LIPITOR [Suspect]
     Indication: BLOOD CHOLESTEROL INCREASED
     Dosage: 80 MG, DAILY
     Route: 048

REACTIONS (8)
  - CARDIAC DISORDER [None]
  - AMNESIA [None]
  - INSOMNIA [None]
  - LOSS OF CONSCIOUSNESS [None]
  - DIPLOPIA [None]
  - DEAFNESS [None]
  - CATARACT [None]
  - OXYGEN SATURATION DECREASED [None]
